FAERS Safety Report 7329394-4 (Version None)
Quarter: 2011Q1

REPORT INFORMATION
  Report Type: 
  Country: None (occurrence: None)
  Receive Date: 20110225
  Receipt Date: 20110225
  Transmission Date: 20110831
  Serious: Yes (Other)
  Sender: FDA-Public Use
  Company Number: None

PATIENT
  Age: 16 Year
  Sex: Female
  Weight: 44.6 kg

DRUGS (2)
  1. FLUVOXAMINE MALEATE [Suspect]
     Indication: ANXIETY
  2. FLUVOXAMINE MALEATE [Suspect]

REACTIONS (5)
  - ANXIETY [None]
  - CRYING [None]
  - AFFECTIVE DISORDER [None]
  - PRODUCT QUALITY ISSUE [None]
  - PERSONALITY CHANGE [None]
